FAERS Safety Report 5368330-7 (Version None)
Quarter: 2007Q2

REPORT INFORMATION
  Report Type: 
  Country: None (occurrence: None)
  Receive Date: 20070619
  Receipt Date: 20070608
  Transmission Date: 20071010
  Serious: Yes (Life-Threatening, Hospitalization)
  Sender: FDA-Public Use
  Company Number: TKT01200700279

PATIENT
  Age: 6 Year
  Sex: Male
  Weight: 21 kg

DRUGS (1)
  1. IDURSULFASE        (IDURSULFASE) [Suspect]
     Indication: MUCOPOLYSACCHARIDOSIS II
     Dosage: 0.5 MG/KG, 1 IN 1 WK, INTRAVENOUS DRIP
     Route: 041

REACTIONS (2)
  - MEDIASTINAL DISORDER [None]
  - RESPIRATORY DISTRESS [None]
